FAERS Safety Report 20320555 (Version 1)
Quarter: 2022Q1

REPORT INFORMATION
  Report Type: Spontaneous
  Country: US (occurrence: US)
  Receive Date: 20220111
  Receipt Date: 20220111
  Transmission Date: 20220424
  Serious: Yes (Hospitalization)
  Sender: FDA-Public Use
  Company Number: US-BIOVITRUM-2022US00059

PATIENT
  Sex: Male

DRUGS (3)
  1. SYNAGIS [Suspect]
     Active Substance: PALIVIZUMAB
     Indication: Respiratory syncytial virus infection
     Dosage: UNKNOWN
     Route: 030
     Dates: start: 20210916
  2. SYNAGIS [Suspect]
     Active Substance: PALIVIZUMAB
     Indication: Atrial septal defect
  3. SYNAGIS [Suspect]
     Active Substance: PALIVIZUMAB
     Indication: Ventricular septal defect

REACTIONS (1)
  - Ill-defined disorder [Unknown]
